FAERS Safety Report 11149526 (Version 6)
Quarter: 2016Q4

REPORT INFORMATION
  Report Type: Spontaneous
  Country: US (occurrence: US)
  Receive Date: 20150529
  Receipt Date: 20161214
  Transmission Date: 20170206
  Serious: Yes (Hospitalization, Disabling, Other)
  Sender: FDA-Public Use
  Company Number: US-009507513-1505USA015526

PATIENT
  Sex: Female
  Weight: 55.78 kg

DRUGS (4)
  1. FOSAMAX [Suspect]
     Active Substance: ALENDRONATE SODIUM
     Indication: OSTEOPOROSIS
     Dosage: 70 MG, UNKNOWN
     Route: 048
     Dates: start: 200502, end: 201505
  2. ALENDRONATE SODIUM. [Suspect]
     Active Substance: ALENDRONATE SODIUM
     Indication: OSTEOPOROSIS
     Dosage: 70 MG, UNKNOWN
     Route: 048
     Dates: start: 20090115, end: 20140114
  3. FOSAMAX [Suspect]
     Active Substance: ALENDRONATE SODIUM
     Indication: OSTEOPENIA
  4. ALENDRONATE SODIUM. [Suspect]
     Active Substance: ALENDRONATE SODIUM
     Indication: OSTEOPENIA

REACTIONS (13)
  - Hypertension [Unknown]
  - Squamous cell carcinoma of skin [Unknown]
  - Milia [Unknown]
  - Femur fracture [Unknown]
  - Headache [Unknown]
  - Femur fracture [Unknown]
  - Blood cholesterol increased [Unknown]
  - Impaired fasting glucose [Unknown]
  - Breast cancer recurrent [Unknown]
  - Renal impairment [Unknown]
  - Fall [Unknown]
  - Renal mass [Unknown]
  - Seizure [Unknown]

NARRATIVE: CASE EVENT DATE: 2009
